FAERS Safety Report 9410556 (Version 3)
Quarter: 2013Q3

REPORT INFORMATION
  Report Type: Report from Study
  Country: CA (occurrence: CA)
  Receive Date: 20130719
  Receipt Date: 20130828
  Transmission Date: 20140515
  Serious: Yes (Other)
  Sender: FDA-Public Use
  Company Number: CA-JNJFOC-20130618760

PATIENT
  Age: 41 Year
  Sex: Male
  Weight: 70 kg

DRUGS (3)
  1. REMICADE [Suspect]
     Indication: COLITIS ULCERATIVE
     Dosage: THE PATIENT HAD 35 INFUSIONS WITH GREAT CLINICAL RESPONSE.
     Route: 042
     Dates: start: 201307
  2. REMICADE [Suspect]
     Indication: COLITIS ULCERATIVE
     Route: 042
     Dates: start: 20130816
  3. REMICADE [Suspect]
     Indication: COLITIS ULCERATIVE
     Dosage: THE PATIENT HAD 35 INFUSIONS WITH GREAT CLINICAL RESPONSE.
     Route: 042
     Dates: start: 200911

REACTIONS (5)
  - Pyoderma gangrenosum [Unknown]
  - Colitis ulcerative [Recovering/Resolving]
  - Therapeutic response decreased [Unknown]
  - Dizziness [Recovering/Resolving]
  - Weight decreased [Recovering/Resolving]
